FAERS Safety Report 22221866 (Version 1)
Quarter: 2023Q2

REPORT INFORMATION
  Report Type: Spontaneous
  Country: JP (occurrence: JP)
  Receive Date: 20230418
  Receipt Date: 20230418
  Transmission Date: 20230721
  Serious: Yes (Hospitalization, Other)
  Sender: FDA-Public Use
  Company Number: JP-BAXTER-2023BAX013840

PATIENT
  Age: 79 Year
  Sex: Female

DRUGS (2)
  1. EXTRANEAL [Suspect]
     Active Substance: CALCIUM CHLORIDE\ICODEXTRIN\MAGNESIUM CHLORIDE\SODIUM CHLORIDE\SODIUM LACTATE
     Indication: Dialysis
     Dosage: UNKNOWN
     Route: 033
     Dates: start: 20190330
  2. REGUNEAL LCA [Suspect]
     Active Substance: CALCIUM CHLORIDE\DEXTROSE MONOHYDRATE\HYDROCHLORIC ACID\MAGNESIUM CHLORIDE\SODIUM BICARBONATE\SODIUM
     Indication: Dialysis
     Dosage: UNKNOWN
     Route: 033
     Dates: start: 20210924

REACTIONS (3)
  - Peritonitis [Recovered/Resolved]
  - Abdominal pain [Unknown]
  - Device related infection [Unknown]

NARRATIVE: CASE EVENT DATE: 20230220
